FAERS Safety Report 25717972 (Version 2)
Quarter: 2025Q3

REPORT INFORMATION
  Report Type: Spontaneous
  Country: US (occurrence: US)
  Receive Date: 20250822
  Receipt Date: 20250827
  Transmission Date: 20251020
  Serious: Yes (Other)
  Sender: ELI LILLY AND COMPANY
  Company Number: US-ELI_LILLY_AND_COMPANY-US202508016934

PATIENT

DRUGS (1)
  1. TRULICITY [Suspect]
     Active Substance: DULAGLUTIDE
     Indication: Type 2 diabetes mellitus
     Route: 065

REACTIONS (7)
  - Cerebrovascular accident [Unknown]
  - Hepatic steatosis [Unknown]
  - Asthma [Unknown]
  - Sleep apnoea syndrome [Unknown]
  - Back pain [Unknown]
  - Arthralgia [Unknown]
  - Overweight [Unknown]
